FAERS Safety Report 7583024-5 (Version None)
Quarter: 2011Q2

REPORT INFORMATION
  Report Type: 
  Country: None (occurrence: None)
  Receive Date: 20110627
  Receipt Date: 20110627
  Transmission Date: 20111010
  Serious: Yes (Life-Threatening)
  Sender: FDA-Public Use
  Company Number: None

PATIENT
  Age: 49 Year
  Sex: Female
  Weight: 48 kg

DRUGS (5)
  1. ADVIL LIQUI-GELS [Concomitant]
  2. CLODRONATE 800 MG BAYER HEALTH CARE [Suspect]
     Indication: BREAST CANCER
     Dosage: 1600 MG DAILY PO
     Route: 048
     Dates: start: 20091112, end: 20110617
  3. SUDAFED 12 HOUR [Concomitant]
  4. BENADRYL [Concomitant]
  5. TAMOXIFEN CITRATE [Concomitant]

REACTIONS (1)
  - ACUTE MYELOID LEUKAEMIA [None]
